FAERS Safety Report 18198589 (Version 2)
Quarter: 2020Q3

REPORT INFORMATION
  Report Type: Spontaneous
  Country: FR (occurrence: FR)
  Receive Date: 20200826
  Receipt Date: 20200902
  Transmission Date: 20201103
  Serious: Yes (Hospitalization)
  Sender: FDA-Public Use
  Company Number: FR-BAXTER-2020BAX016855

PATIENT
  Age: 71 Year
  Sex: Male
  Weight: 74.5 kg

DRUGS (14)
  1. DOXIL [Suspect]
     Active Substance: DOXORUBICIN HYDROCHLORIDE
     Indication: ALVEOLAR SOFT PART SARCOMA
     Dosage: CYCLICAL
     Route: 042
     Dates: start: 20200729, end: 20200729
  2. LEXOMIL [Concomitant]
     Active Substance: BROMAZEPAM
     Indication: PRODUCT USED FOR UNKNOWN INDICATION
     Route: 065
  3. HOLOXAN 2000 MG, POUDRE POUR USAGE PARENTERAL [Suspect]
     Active Substance: IFOSFAMIDE
     Indication: ALVEOLAR SOFT PART SARCOMA
     Route: 042
     Dates: start: 20200729, end: 20200803
  4. ZOPHREN [Suspect]
     Active Substance: ONDANSETRON
     Indication: VOMITING
     Dosage: 8 MG/4 ML, SOLUTION FOR INJECTION IN PRE?FILLED SYRINGE
     Route: 042
     Dates: start: 20200730, end: 20200803
  5. ZYPREXA [Suspect]
     Active Substance: OLANZAPINE
     Indication: VOMITING
     Route: 048
     Dates: start: 20200731, end: 20200802
  6. EMEND [Suspect]
     Active Substance: APREPITANT
     Indication: VOMITING
     Dosage: INCONNU
     Route: 048
     Dates: start: 20200801, end: 20200802
  7. OXYCONTIN [Concomitant]
     Active Substance: OXYCODONE HYDROCHLORIDE
     Indication: PRODUCT USED FOR UNKNOWN INDICATION
     Dosage: EXTENDED?RELEASE FILM?COATED TABLETS
     Route: 065
  8. SOLUPRED (PREDNISOLONE) [Suspect]
     Active Substance: PREDNISOLONE
     Indication: PRODUCT USED FOR UNKNOWN INDICATION
     Route: 048
     Dates: start: 20200730, end: 20200804
  9. XANAX [Suspect]
     Active Substance: ALPRAZOLAM
     Indication: PREMEDICATION
     Dosage: SCORED TABLET, IN TOTAL
     Route: 048
     Dates: start: 20200801, end: 20200801
  10. SPECIAFOLDINE [Concomitant]
     Active Substance: FOLIC ACID
     Indication: PRODUCT USED FOR UNKNOWN INDICATION
     Dosage: TABLETS
     Route: 065
  11. PRIMPERAN [Suspect]
     Active Substance: METOCLOPRAMIDE HYDROCHLORIDE
     Indication: VOMITING
     Dosage: 10 MG/2 ML, SOLUTION FOR INJECTION IN AMPOULES, IN TOTAL
     Route: 042
     Dates: start: 20200801, end: 20200801
  12. TAHOR [Concomitant]
     Active Substance: ATORVASTATIN CALCIUM
     Indication: PRODUCT USED FOR UNKNOWN INDICATION
     Route: 065
  13. SEROPLEX [Concomitant]
     Active Substance: ESCITALOPRAM OXALATE
     Indication: PRODUCT USED FOR UNKNOWN INDICATION
     Dosage: SCORED FILM?COATED TABLETS
     Route: 065
  14. PLITICAN [Concomitant]
     Active Substance: ALIZAPRIDE HYDROCHLORIDE
     Indication: PRODUCT USED FOR UNKNOWN INDICATION
     Route: 065

REACTIONS (4)
  - Tremor [Recovered/Resolved]
  - Renal impairment [Not Recovered/Not Resolved]
  - Tachycardia [Recovered/Resolved]
  - Toxic encephalopathy [Recovering/Resolving]

NARRATIVE: CASE EVENT DATE: 20200801
